FAERS Safety Report 9417857 (Version 2)
Quarter: 2013Q3

REPORT INFORMATION
  Report Type: Spontaneous
  Country: US (occurrence: US)
  Receive Date: 20130724
  Receipt Date: 20130811
  Transmission Date: 20140515
  Serious: Yes (Other)
  Sender: FDA-Public Use
  Company Number: US-AMGEN-USASP2013050763

PATIENT
  Age: 65 Year
  Sex: Female
  Weight: 74.83 kg

DRUGS (6)
  1. PROLIA [Suspect]
     Indication: OSTEOPOROSIS POSTMENOPAUSAL
     Dosage: 60 MG, Q6MO
     Route: 058
     Dates: start: 20120523, end: 20121123
  2. VAGIFEM [Concomitant]
     Indication: ATROPHIC VULVOVAGINITIS
     Dosage: 10 MUG, 2 TIMES/WK
     Route: 067
  3. BENICAR HCT [Concomitant]
     Indication: HYPERTENSION
     Route: 048
  4. LEVOTHYROXINE [Concomitant]
     Indication: HYPOTHYROIDISM
     Dosage: 112 MUG, UNK
     Route: 048
  5. SINGULAIR [Concomitant]
     Indication: ASTHMA
     Dosage: 10 MG, QD
     Route: 048
  6. LIPITOR [Concomitant]
     Indication: HYPERLIPIDAEMIA
     Dosage: 10 MG, QD
     Route: 048

REACTIONS (1)
  - Fracture pain [Recovered/Resolved]
